FAERS Safety Report 22055583 (Version 1)
Quarter: 2023Q1

REPORT INFORMATION
  Report Type: Spontaneous
  Country: FR (occurrence: FR)
  Receive Date: 20230302
  Receipt Date: 20230302
  Transmission Date: 20230417
  Serious: Yes (Other)
  Sender: FDA-Public Use
  Company Number: FR-GUERBETG-FR-20230083

PATIENT
  Age: 81 Year

DRUGS (1)
  1. IOVERSOL [Suspect]
     Active Substance: IOVERSOL
     Indication: Angiogram
     Dates: start: 20230217, end: 20230217

REACTIONS (3)
  - Hypersensitivity [Unknown]
  - Infusion site extravasation [Unknown]
  - Blister [Unknown]

NARRATIVE: CASE EVENT DATE: 20230217
